FAERS Safety Report 24208548 (Version 2)
Quarter: 2024Q4

REPORT INFORMATION
  Report Type: Spontaneous
  Country: CH (occurrence: CH)
  Receive Date: 20240814
  Receipt Date: 20241019
  Transmission Date: 20250115
  Serious: Yes (Other)
  Sender: ABBVIE
  Company Number: CH-ABBVIE-5874708

PATIENT
  Age: 54 Year
  Sex: Female
  Weight: 83 kg

DRUGS (11)
  1. SKYRIZI [Suspect]
     Active Substance: RISANKIZUMAB-RZAA
     Indication: Enteropathic spondylitis
     Dosage: STARTED ON WEEK 12
     Route: 058
     Dates: start: 202403
  2. LYRICA [Concomitant]
     Active Substance: PREGABALIN
     Indication: Product used for unknown indication
     Route: 048
  3. LEQVIO [Concomitant]
     Active Substance: INCLISIRAN SODIUM
     Indication: Product used for unknown indication
     Route: 058
  4. SKYRIZI [Suspect]
     Active Substance: RISANKIZUMAB-RZAA
     Indication: Enteropathic spondylitis
     Dosage: WEEK 0
     Route: 042
     Dates: start: 20231218, end: 20231218
  5. SKYRIZI [Suspect]
     Active Substance: RISANKIZUMAB-RZAA
     Indication: Enteropathic spondylitis
     Dosage: WEEK 4
     Route: 042
     Dates: start: 202401, end: 202401
  6. SKYRIZI [Suspect]
     Active Substance: RISANKIZUMAB-RZAA
     Indication: Enteropathic spondylitis
     Dosage: WEEK 8
     Route: 042
     Dates: start: 202402, end: 202402
  7. Seropram [Concomitant]
     Indication: Product used for unknown indication
     Route: 048
  8. METHOTREXATE SODIUM [Suspect]
     Active Substance: METHOTREXATE SODIUM
     Indication: Enteropathic spondylitis
     Dosage: DOSE REDUCED
     Route: 058
     Dates: start: 20240615
  9. METHOTREXATE SODIUM [Suspect]
     Active Substance: METHOTREXATE SODIUM
     Indication: Enteropathic spondylitis
     Route: 058
     Dates: start: 201910, end: 20240615
  10. ESOMEPRAZOLE [Concomitant]
     Active Substance: ESOMEPRAZOLE
     Indication: Product used for unknown indication
     Route: 048
  11. VALPROATE SODIUM [Concomitant]
     Active Substance: VALPROATE SODIUM
     Indication: Product used for unknown indication
     Route: 048

REACTIONS (3)
  - Pericarditis [Recovered/Resolved]
  - Off label use [Unknown]
  - Pericarditis [Not Recovered/Not Resolved]

NARRATIVE: CASE EVENT DATE: 20231218
